FAERS Safety Report 16822252 (Version 1)
Quarter: 2019Q4

REPORT INFORMATION
  Report Type: Spontaneous
  Country: US (occurrence: US)
  Receive Date: 20190918
  Receipt Date: 20190918
  Transmission Date: 20200122
  Serious: Yes (Other)
  Sender: FDA-Public Use
  Company Number: None

PATIENT
  Age: 71 Year
  Sex: Female
  Weight: 54.9 kg

DRUGS (16)
  1. LOSARTAN. [Concomitant]
     Active Substance: LOSARTAN
  2. VITAMIN D3 [Concomitant]
     Active Substance: CHOLECALCIFEROL
  3. IBRANCE [Suspect]
     Active Substance: PALBOCICLIB
     Indication: BREAST CANCER
     Dosage: ?          OTHER FREQUENCY:QD X21DAYS, 7D OFF;?
     Route: 048
     Dates: start: 20190822
  4. ADVIL [Concomitant]
     Active Substance: IBUPROFEN
  5. ACETAMINOPHEN EXTRA STRENGTH [Concomitant]
     Active Substance: ACETAMINOPHEN
  6. SYSTANE (HYPROMELLOSE 2910 (4000 MPA.S)) [Concomitant]
     Active Substance: HYPROMELLOSE 2910 (4000 MPA.S)
  7. CALCIUM CARBONATE 600MG [Concomitant]
  8. OXYCODONE [Concomitant]
     Active Substance: OXYCODONE
  9. MECLIZINE [Concomitant]
     Active Substance: MECLIZINE HYDROCHLORIDE
  10. DIAZEPAM. [Concomitant]
     Active Substance: DIAZEPAM
  11. LOSARTAN-HYDROCHLOROTHIAZIDE [Concomitant]
     Active Substance: HYDROCHLOROTHIAZIDE\LOSARTAN
  12. LETROZOLE 2.5MG [Concomitant]
     Active Substance: LETROZOLE
     Dates: start: 20190628, end: 20190814
  13. VALIUM [Concomitant]
     Active Substance: DIAZEPAM
  14. PROCHLORPERAZINE 10MG [Concomitant]
     Dates: start: 20190717, end: 20190718
  15. TRAVATAN Z [Concomitant]
     Active Substance: TRAVOPROST
  16. IBRANCE [Concomitant]
     Active Substance: PALBOCICLIB
     Dates: start: 20190628, end: 20190815

REACTIONS (3)
  - Dehydration [None]
  - Malaise [None]
  - Therapy cessation [None]
